FAERS Safety Report 6156238-9 (Version None)
Quarter: 2009Q2

REPORT INFORMATION
  Report Type: 
  Country: None (occurrence: None)
  Receive Date: 20090410
  Receipt Date: 20090410
  Transmission Date: 20091009
  Serious: Yes (Other)
  Sender: FDA-Public Use
  Company Number: None

PATIENT
  Sex: Male
  Weight: 68.0396 kg

DRUGS (21)
  1. AMEVIVE [Suspect]
     Indication: PSORIASIS
     Dosage: 15 MG IM WEEKLY
     Route: 030
     Dates: start: 20081208
  2. AMEVIVE [Suspect]
     Indication: PSORIASIS
     Dosage: 15 MG IM WEEKLY
     Route: 030
     Dates: start: 20081219
  3. AMEVIVE [Suspect]
     Indication: PSORIASIS
     Dosage: 15 MG IM WEEKLY
     Route: 030
     Dates: start: 20081223
  4. AMEVIVE [Suspect]
     Indication: PSORIASIS
     Dosage: 15 MG IM WEEKLY
     Route: 030
     Dates: start: 20090112
  5. AMEVIVE [Suspect]
     Indication: PSORIASIS
     Dosage: 15 MG IM WEEKLY
     Route: 030
     Dates: start: 20090126
  6. AMEVIVE [Suspect]
     Indication: PSORIASIS
     Dosage: 15 MG IM WEEKLY
     Route: 030
     Dates: start: 20090205
  7. AMEVIVE [Suspect]
     Indication: PSORIASIS
     Dosage: 15 MG IM WEEKLY
     Route: 030
     Dates: start: 20090210
  8. AMEVIVE [Suspect]
     Indication: PSORIASIS
     Dosage: 15 MG IM WEEKLY
     Route: 030
     Dates: start: 20090223
  9. AMEVIVE [Suspect]
     Indication: PSORIASIS
     Dosage: 15 MG IM WEEKLY
     Route: 030
     Dates: start: 20090303
  10. AMEVIVE [Suspect]
     Indication: PSORIASIS
     Dosage: 15 MG IM WEEKLY
     Route: 030
     Dates: start: 20090309
  11. AMEVIVE [Suspect]
     Indication: PSORIASIS
     Dosage: 15 MG IM WEEKLY
     Route: 030
     Dates: start: 20090318
  12. AMEVIVE [Suspect]
     Indication: PSORIASIS
     Dosage: 15 MG IM WEEKLY
     Route: 030
     Dates: start: 20090324
  13. JUVENON NETTLE HERBAL TEA [Concomitant]
  14. MULTI-VITAMINS [Concomitant]
  15. ZETA CRYSTALS [Concomitant]
  16. VITAMIN B COMPLEX CAP [Concomitant]
  17. NATURE'S WAY GOLD MEGA VITAMINS [Concomitant]
  18. VITAMIN C COMPLEX [Concomitant]
  19. RHODIOLA [Concomitant]
  20. MARSHMELLOW (MULISTAGE) [Concomitant]
  21. IBUPROFEN [Concomitant]

REACTIONS (3)
  - ALANINE AMINOTRANSFERASE INCREASED [None]
  - ALCOHOL USE [None]
  - ASPARTATE AMINOTRANSFERASE INCREASED [None]
